FAERS Safety Report 7638841-X (Version None)
Quarter: 2011Q3

REPORT INFORMATION
  Report Type: 
  Country: None (occurrence: None)
  Receive Date: 20110727
  Receipt Date: 20110713
  Transmission Date: 20111222
  Serious: Yes (Death)
  Sender: FDA-Public Use
  Company Number: US-MYLANLABS-2011S1014893

PATIENT
  Sex: Female

DRUGS (13)
  1. IFOSFAMIDE [Suspect]
     Dosage: 1100 MG/M2
     Route: 065
     Dates: start: 19900101
  2. IFOSFAMIDE [Suspect]
     Dosage: 1800 MG/M2 PER DOSE
     Route: 065
     Dates: start: 19900101
  3. DOXORUBICIN HCL [Suspect]
     Dosage: 16 MG/M2
     Route: 065
     Dates: start: 19900101, end: 19910301
  4. IFOSFAMIDE [Suspect]
     Route: 065
     Dates: start: 19900101
  5. IFOSFAMIDE [Suspect]
     Dosage: 1800 MG/M2 PER DOSE
     Route: 065
     Dates: start: 19900101
  6. ETOPOSIDE [Suspect]
     Indication: OSTEOSARCOMA RECURRENT
     Route: 065
     Dates: start: 20030601
  7. METHOTREXATE [Suspect]
     Indication: BONE SARCOMA
     Route: 065
     Dates: start: 19900101, end: 19910301
  8. IFOSFAMIDE [Suspect]
     Indication: BONE SARCOMA
     Dosage: 1800 MG/M2
     Route: 065
     Dates: start: 19900101
  9. IFOSFAMIDE [Suspect]
     Indication: OSTEOSARCOMA RECURRENT
     Dosage: 1800 MG/M2
     Route: 065
     Dates: start: 19900101
  10. IFOSFAMIDE [Suspect]
     Dosage: 1100 MG/M2
     Route: 065
     Dates: start: 19900101
  11. DOXORUBICIN HCL [Suspect]
     Indication: BONE SARCOMA
     Dosage: 25 MG/M2
     Route: 065
     Dates: start: 19900101, end: 19910301
  12. ETOPOSIDE [Suspect]
     Dosage: 100 MG/M2 PER DOSE
     Route: 065
     Dates: start: 20030601
  13. IFOSFAMIDE [Suspect]
     Route: 065
     Dates: start: 19900101

REACTIONS (3)
  - MYELODYSPLASTIC SYNDROME [None]
  - THROMBOCYTOPENIA [None]
  - ACUTE MYELOID LEUKAEMIA [None]
